FAERS Safety Report 8125450-1 (Version None)
Quarter: 2012Q1

REPORT INFORMATION
  Report Type: 
  Country: None (occurrence: None)
  Receive Date: 20120209
  Receipt Date: 20120125
  Transmission Date: 20120608
  Serious: Yes (Hospitalization)
  Sender: FDA-Public Use
  Company Number: US-WATSON-2012-01244

PATIENT
  Sex: Female
  Weight: 69.841 kg

DRUGS (1)
  1. LEVONORGESTREL [Suspect]
     Indication: CONTRACEPTION
     Dosage: 1ST TAB TAKEN AFTER 48H, 2ND TAB TAKEN WITHIN 12H AFTER 1ST TAB
     Route: 048
     Dates: start: 20111218, end: 20111218

REACTIONS (3)
  - GENERALISED OEDEMA [None]
  - ECTOPIC PREGNANCY [None]
  - PARAESTHESIA [None]
